FAERS Safety Report 5929335-8 (Version None)
Quarter: 2008Q4

REPORT INFORMATION
  Report Type: 
  Country: None (occurrence: None)
  Receive Date: 20081024
  Receipt Date: 20081017
  Transmission Date: 20090506
  Serious: Yes (Hospitalization)
  Sender: FDA-Public Use
  Company Number: JP-ASTRAZENECA-2008AP07879

PATIENT
  Age: 34 Year
  Sex: Female
  Weight: 45 kg

DRUGS (1)
  1. ZOLADEX [Suspect]
     Indication: ENDOMETRIOSIS
     Route: 058
     Dates: start: 20080613, end: 20080808

REACTIONS (1)
  - EOSINOPHIL COUNT INCREASED [None]
